FAERS Safety Report 25862839 (Version 1)
Quarter: 2025Q3

REPORT INFORMATION
  Report Type: Report from Study
  Country: US (occurrence: US)
  Receive Date: 20250930
  Receipt Date: 20250930
  Transmission Date: 20251020
  Serious: Yes (Hospitalization, Other)
  Sender: ABBVIE
  Company Number: US-ABBVIE-6477807

PATIENT
  Age: 82 Year
  Sex: Male
  Weight: 96.85 kg

DRUGS (17)
  1. VENCLEXTA [Suspect]
     Active Substance: VENETOCLAX
     Indication: Mantle cell lymphoma
     Route: 048
  2. CYCLOPHOSPHAMIDE\BORTEZOMIB\DEXAMETHASONE [Concomitant]
     Active Substance: CYCLOPHOSPHAMIDE\BORTEZOMIB\DEXAMETHASONE
     Indication: Product used for unknown indication
     Dates: start: 20250815
  3. UNSPECIFIED INGREDIENT [Concomitant]
     Active Substance: UNSPECIFIED INGREDIENT
     Indication: Product used for unknown indication
     Dates: start: 20250815
  4. SODIUM CHLORIDE [Concomitant]
     Active Substance: SODIUM CHLORIDE
     Indication: Product used for unknown indication
  5. CITALOPRAM HYDROBROMIDE [Concomitant]
     Active Substance: CITALOPRAM HYDROBROMIDE
     Indication: Product used for unknown indication
  6. FINASTERIDE [Concomitant]
     Active Substance: FINASTERIDE
     Indication: Product used for unknown indication
  7. CLONIDINE HYDROCHLORIDE [Concomitant]
     Active Substance: CLONIDINE HYDROCHLORIDE
     Indication: Product used for unknown indication
  8. ACETAMINOPHEN\TRAMADOL [Concomitant]
     Active Substance: ACETAMINOPHEN\TRAMADOL
     Indication: Product used for unknown indication
  9. ACYCLOVIR [Concomitant]
     Active Substance: ACYCLOVIR
     Indication: Product used for unknown indication
  10. BRUKINSA [Concomitant]
     Active Substance: ZANUBRUTINIB
     Indication: Product used for unknown indication
  11. Terazosin HCI [Concomitant]
     Indication: Product used for unknown indication
  12. MONTELUKAST SODIUM [Concomitant]
     Active Substance: MONTELUKAST SODIUM
     Indication: Product used for unknown indication
  13. DEXAMETHASONE SODIUM PHOSPHATE [Concomitant]
     Active Substance: DEXAMETHASONE SODIUM PHOSPHATE
     Indication: Product used for unknown indication
  14. MS CONTIN [Concomitant]
     Active Substance: MORPHINE SULFATE
     Indication: Product used for unknown indication
  15. MORPHINE SULFATE [Concomitant]
     Active Substance: MORPHINE SULFATE
     Indication: Product used for unknown indication
  16. GAZYVA [Concomitant]
     Active Substance: OBINUTUZUMAB
     Indication: Product used for unknown indication
  17. OXYCONTIN [Concomitant]
     Active Substance: OXYCODONE HYDROCHLORIDE
     Indication: Product used for unknown indication

REACTIONS (18)
  - Back pain [Unknown]
  - Off label use [Unknown]
  - Dyspnoea [Unknown]
  - Anaemia [Unknown]
  - Proteinuria [Unknown]
  - Acute kidney injury [Unknown]
  - Oxygen saturation decreased [Unknown]
  - Body mass index increased [Unknown]
  - Plasma cell disorder [Unknown]
  - Drug ineffective [Unknown]
  - Spinal stenosis [Unknown]
  - Spinal osteoarthritis [Unknown]
  - Lymphadenopathy [Unknown]
  - Retroperitoneal lymphadenopathy [Unknown]
  - Underweight [Unknown]
  - Haematopoietic neoplasm [Unknown]
  - Impaired work ability [Unknown]
  - Poor quality sleep [Unknown]

NARRATIVE: CASE EVENT DATE: 20250711
